FAERS Safety Report 23456880 (Version 3)
Quarter: 2024Q1

REPORT INFORMATION
  Report Type: Spontaneous
  Country: GB (occurrence: GB)
  Receive Date: 20240130
  Receipt Date: 20240209
  Transmission Date: 20240409
  Serious: Yes (Hospitalization, Other)
  Sender: FDA-Public Use
  Company Number: GB-MYLANLABS-2024M1008322

PATIENT
  Age: 83 Year
  Sex: Female

DRUGS (3)
  1. CLOZARIL [Interacting]
     Active Substance: CLOZAPINE
     Indication: Parkinson^s disease psychosis
     Dosage: 12.5 MILLIGRAM, PM (AT NIGHT)
     Route: 048
     Dates: start: 20210325, end: 20210328
  2. CLOZARIL [Interacting]
     Active Substance: CLOZAPINE
     Dosage: 6.25 MILLIGRAM, AT NIGHT
     Route: 048
  3. CIPROFLOXACIN [Interacting]
     Active Substance: CIPROFLOXACIN
     Indication: Product used for unknown indication
     Dosage: UNK
     Route: 065

REACTIONS (8)
  - Dehydration [Recovered/Resolved with Sequelae]
  - Confusional state [Recovered/Resolved with Sequelae]
  - Delirium [Recovered/Resolved]
  - White blood cell count decreased [Recovered/Resolved]
  - Eosinophil count decreased [Unknown]
  - Somnolence [Unknown]
  - Contraindicated product administered [Unknown]
  - Off label use [Unknown]

NARRATIVE: CASE EVENT DATE: 20231222
